FAERS Safety Report 21262453 (Version 1)
Quarter: 2022Q3

REPORT INFORMATION
  Report Type: Spontaneous
  Country: GB (occurrence: GB)
  Receive Date: 20220828
  Receipt Date: 20220828
  Transmission Date: 20221027
  Serious: Yes (Death, Other)
  Sender: FDA-Public Use
  Company Number: GB-SANOFI-01246545

PATIENT
  Age: 71 Year
  Sex: Female

DRUGS (9)
  1. SARCLISA [Suspect]
     Active Substance: ISATUXIMAB-IRFC
     Dosage: UNK
     Dates: start: 202102
  2. POMALIDOMIDE [Concomitant]
     Active Substance: POMALIDOMIDE
     Dosage: 4 MG, QD ((TAKEN AFTER DIALYSIS ON DIALYSIS DAYS)
  3. DEX [DEXTROMETHORPHAN HYDROBROMIDE] [Concomitant]
     Dosage: 20 MG, QW
  4. ACYCLOVIR [Concomitant]
     Active Substance: ACYCLOVIR
  5. FLUCONAZOLE [Concomitant]
     Active Substance: FLUCONAZOLE
  6. DOMPERIDONE [Concomitant]
     Active Substance: DOMPERIDONE
  7. DALTEPARIN [Concomitant]
     Active Substance: DALTEPARIN
  8. OMEPRAZOLE [Concomitant]
     Active Substance: OMEPRAZOLE
  9. ALLOPURINOL [Concomitant]
     Active Substance: ALLOPURINOL

REACTIONS (3)
  - Neutropenia [Fatal]
  - Thrombocytopenia [Fatal]
  - Anaemia [Fatal]
